FAERS Safety Report 4864444-6 (Version None)
Quarter: 2005Q4

REPORT INFORMATION
  Report Type: 
  Country: None (occurrence: None)
  Receive Date: 20051220
  Receipt Date: 20051220
  Transmission Date: 20060501
  Serious: No
  Sender: FDA-Public Use
  Company Number: None

PATIENT
  Age: 82 Year
  Sex: Male

DRUGS (1)
  1. GATIFLOXACIN  400 [Suspect]
     Indication: BRONCHITIS
     Dosage: 400 MG PO BID
     Route: 048

REACTIONS (1)
  - BLOOD GLUCOSE INCREASED [None]
